FAERS Safety Report 4350030-3 (Version None)
Quarter: 2004Q2

REPORT INFORMATION
  Report Type: 
  Country: None (occurrence: None)
  Receive Date: 20040429
  Receipt Date: 20040423
  Transmission Date: 20050107
  Serious: Yes (Other)
  Sender: FDA-Public Use
  Company Number: 200411504JP

PATIENT
  Age: 70 Year
  Sex: Female

DRUGS (1)
  1. LASIX [Suspect]

REACTIONS (2)
  - RENAL ATROPHY [None]
  - RENAL IMPAIRMENT [None]
